FAERS Safety Report 12640115 (Version 1)
Quarter: 2016Q3

REPORT INFORMATION
  Report Type: Spontaneous
  Country: US (occurrence: None)
  Receive Date: 20160809
  Receipt Date: 20160809
  Transmission Date: 20161109
  Serious: Yes (Hospitalization)
  Sender: FDA-Public Use
  Company Number: None

PATIENT
  Age: 41 Year
  Sex: Male

DRUGS (2)
  1. VIVITROL [Suspect]
     Active Substance: NALTREXONE
     Indication: DRUG DEPENDENCE
     Dosage: VIVITROL 380 MG?EVERY 4 WEEKS?INTRAMUSCULAR
     Route: 030
     Dates: start: 20160317, end: 20160622
  2. IBUPROFEN. [Concomitant]
     Active Substance: IBUPROFEN

REACTIONS (2)
  - Confusional state [None]
  - Amnesia [None]

NARRATIVE: CASE EVENT DATE: 20160622
